FAERS Safety Report 6239693-5 (Version None)
Quarter: 2009Q2

REPORT INFORMATION
  Report Type: 
  Country: None (occurrence: None)
  Receive Date: 20090619
  Receipt Date: 20090604
  Transmission Date: 20091009
  Serious: Yes (Other)
  Sender: FDA-Public Use
  Company Number: DSU-2009-01205

PATIENT
  Age: 54 Year
  Sex: Male
  Weight: 65 kg

DRUGS (4)
  1. OLMESARTAN MEDOXOMIL [Suspect]
     Indication: HYPERTENSION
     Dosage: 20 MG (20 MG, QD), PER ORAL
     Route: 048
     Dates: start: 20090521, end: 20090522
  2. AMLODIPINE (AMODIPINE) (AMLODIPINE) [Concomitant]
  3. METOPROLOL SUCCINATE [Concomitant]
  4. INSULIN (INSULIN) (INSULIN) [Concomitant]

REACTIONS (1)
  - HYPERTENSION [None]
